FAERS Safety Report 4756743-3 (Version None)
Quarter: 2005Q3

REPORT INFORMATION
  Report Type: 
  Country: None (occurrence: None)
  Receive Date: 20050830
  Receipt Date: 20050823
  Transmission Date: 20060218
  Serious: Yes (Death, Other)
  Sender: FDA-Public Use
  Company Number: JP-BRISTOL-MYERS SQUIBB COMPANY-13089396

PATIENT
  Age: 61 Year
  Sex: Male

DRUGS (2)
  1. TAXOL [Suspect]
     Indication: GASTRIC CANCER
     Route: 041
     Dates: start: 20050721, end: 20050721
  2. TS-1 [Concomitant]
     Indication: GASTRIC CANCER
     Dates: start: 20050318, end: 20050527

REACTIONS (3)
  - DEATH [None]
  - INTERSTITIAL LUNG DISEASE [None]
  - WHITE BLOOD CELL COUNT DECREASED [None]
